FAERS Safety Report 13847887 (Version 1)
Quarter: 2017Q3

REPORT INFORMATION
  Report Type: Spontaneous
  Country: US (occurrence: US)
  Receive Date: 20170809
  Receipt Date: 20170809
  Transmission Date: 20171127
  Serious: No
  Sender: FDA-Public Use
  Company Number: US-PURDUE-USA-2017-0137586

PATIENT
  Age: 87 Year
  Sex: Female

DRUGS (2)
  1. BUTRANS [Suspect]
     Active Substance: BUPRENORPHINE
     Indication: PAIN
     Dosage: (2 X 5 MCG/HR) 10 MCG/HR, WEEKLY
     Route: 062
     Dates: start: 20170323
  2. BUTRANS [Suspect]
     Active Substance: BUPRENORPHINE
     Indication: OSTEOARTHRITIS
     Dosage: 5 MCG/HR, WEEKLY
     Route: 062
     Dates: start: 20170323

REACTIONS (1)
  - Inadequate analgesia [Unknown]
